FAERS Safety Report 20132504 (Version 2)
Quarter: 2021Q4

REPORT INFORMATION
  Report Type: Spontaneous
  Country: FR (occurrence: FR)
  Receive Date: 20211130
  Receipt Date: 20211209
  Transmission Date: 20220303
  Serious: Yes (Death, Life-Threatening, Hospitalization, Other)
  Sender: FDA-Public Use
  Company Number: FR-SA-2021SA396712

PATIENT
  Age: 43 Year
  Sex: Male

DRUGS (6)
  1. OXALIPLATIN [Suspect]
     Active Substance: OXALIPLATIN
     Indication: Adenocarcinoma of colon
     Dosage: CUMULATIVE DOSE  4585 MG
     Dates: start: 201809, end: 202004
  2. OXALIPLATIN [Suspect]
     Active Substance: OXALIPLATIN
     Dosage: HEPATIC ARTERIAL INFUSION, DOSE 85 MG/M2
     Dates: start: 201809, end: 202004
  3. IRINOTECAN [Concomitant]
     Active Substance: IRINOTECAN
     Indication: Adenocarcinoma of colon
     Dosage: 180 MG/M2, CYCLICAL
     Dates: start: 201809
  4. PANITUMUMAB [Concomitant]
     Active Substance: PANITUMUMAB
     Indication: Adenocarcinoma of colon
     Dates: start: 201809
  5. FLUOROURACIL [Concomitant]
     Active Substance: FLUOROURACIL
     Indication: Adenocarcinoma of colon
     Route: 042
     Dates: start: 201809
  6. LEUCOVORIN [Concomitant]
     Active Substance: LEUCOVORIN
     Indication: Adenocarcinoma of colon
     Route: 042
     Dates: start: 201809

REACTIONS (9)
  - Venoocclusive liver disease [Fatal]
  - Hepatic failure [Fatal]
  - Jaundice [Fatal]
  - Ascites [Fatal]
  - Nodular regenerative hyperplasia [Fatal]
  - Hepatic fibrosis [Fatal]
  - Hepatic necrosis [Fatal]
  - Cholestasis [Fatal]
  - Thrombocytopenia [Unknown]

NARRATIVE: CASE EVENT DATE: 20200601
